FAERS Safety Report 9320409 (Version 2)
Quarter: 2013Q4

REPORT INFORMATION
  Report Type: Spontaneous
  Country: US (occurrence: US)
  Receive Date: 20130530
  Receipt Date: 20131115
  Transmission Date: 20140711
  Serious: Yes (Hospitalization)
  Sender: FDA-Public Use
  Company Number: US-B.I. PHARMACEUTICALS,INC./RIDGEFIELD-2013-BI-14568BP

PATIENT
  Sex: Male
  Weight: 99.79 kg

DRUGS (13)
  1. PRADAXA [Suspect]
     Indication: ATRIAL FIBRILLATION
     Dosage: 300 MG
     Route: 048
     Dates: start: 20110428, end: 20110530
  2. PERCOCET [Concomitant]
  3. DIGOXIN [Concomitant]
     Dosage: 0.125 MG
  4. PLAVIX [Concomitant]
     Dosage: 75 MG
  5. SIMVASTATIN [Concomitant]
     Dosage: 10 MG
  6. METOPROLOL XL [Concomitant]
     Dosage: 100 MG
  7. AMIODARONE [Concomitant]
     Dosage: 200 MG
  8. LASIX [Concomitant]
     Dosage: 40 MG
  9. LISINOPRIL [Concomitant]
     Dosage: 10 MG
  10. PEPCID [Concomitant]
     Dosage: 20 MG
  11. PRAVACHOL [Concomitant]
     Dosage: 80 MG
  12. POTASSIUM [Concomitant]
     Dosage: 20 MEQ
  13. ALBUTEROL [Concomitant]

REACTIONS (6)
  - Gastrointestinal haemorrhage [Unknown]
  - Haemorrhagic anaemia [Unknown]
  - Mesenteric artery embolism [Unknown]
  - Renal failure acute [Unknown]
  - Thrombocytopenia [Unknown]
  - Sepsis [Unknown]
